FAERS Safety Report 15168420 (Version 7)
Quarter: 2018Q4

REPORT INFORMATION
  Report Type: Report from Study
  Country: US (occurrence: US)
  Receive Date: 20180719
  Receipt Date: 20181011
  Transmission Date: 20190204
  Serious: Yes (Other)
  Sender: FDA-Public Use
  Company Number: US-JAZZ-2018-US-010487

PATIENT
  Sex: Female

DRUGS (6)
  1. XYREM [Suspect]
     Active Substance: SODIUM OXYBATE
     Dosage: 4.5 G, BID
     Route: 048
  2. XYREM [Suspect]
     Active Substance: SODIUM OXYBATE
     Indication: NARCOLEPSY
     Dosage: 2.25 G, QD
     Route: 048
     Dates: start: 20180629
  3. XANAX [Concomitant]
     Active Substance: ALPRAZOLAM
     Indication: PRODUCT USED FOR UNKNOWN INDICATION
     Dosage: UNK
     Dates: start: 201807, end: 201807
  4. MODAFINIL. [Suspect]
     Active Substance: MODAFINIL
     Indication: PRODUCT USED FOR UNKNOWN INDICATION
  5. NORVASC [Concomitant]
     Active Substance: AMLODIPINE BESYLATE
  6. HYDROCHLOROTHIAZIDE. [Concomitant]
     Active Substance: HYDROCHLOROTHIAZIDE

REACTIONS (24)
  - Stress [Not Recovered/Not Resolved]
  - Drug ineffective [Not Recovered/Not Resolved]
  - Gastrooesophageal reflux disease [Unknown]
  - Tremor [Not Recovered/Not Resolved]
  - Body temperature increased [Unknown]
  - Malaise [Not Recovered/Not Resolved]
  - Inflammation [Unknown]
  - Retching [Not Recovered/Not Resolved]
  - Drug intolerance [Not Recovered/Not Resolved]
  - Weight decreased [Unknown]
  - Hypersensitivity [Not Recovered/Not Resolved]
  - Sinusitis [Unknown]
  - Dyspnoea [Unknown]
  - Choking [Not Recovered/Not Resolved]
  - Blood pressure increased [Unknown]
  - Sedation [Not Recovered/Not Resolved]
  - Panic attack [Unknown]
  - Hypokalaemia [Recovering/Resolving]
  - Abdominal discomfort [Unknown]
  - Diarrhoea [Recovering/Resolving]
  - Headache [Unknown]
  - Decreased appetite [Not Recovered/Not Resolved]
  - Abnormal dreams [Not Recovered/Not Resolved]
  - Anxiety [Unknown]

NARRATIVE: CASE EVENT DATE: 2018
